FAERS Safety Report 19174533 (Version 1)
Quarter: 2021Q2

REPORT INFORMATION
  Report Type: Not Available
  Country: US (occurrence: None)
  Receive Date: 20210423
  Receipt Date: 20210423
  Transmission Date: 20210721
  Serious: Yes (Other)
  Sender: FDA-Public Use
  Company Number: US-AKORN-166379

PATIENT
  Age: 87 Year
  Sex: Female

DRUGS (1)
  1. THERATEARS LUBRICANT [Suspect]
     Active Substance: CARBOXYMETHYLCELLULOSE SODIUM

REACTIONS (6)
  - Eye irritation [None]
  - Lacrimation increased [None]
  - Eye swelling [None]
  - Hypersensitivity [None]
  - Blindness transient [None]
  - Ocular hyperaemia [Recovered/Resolved]

NARRATIVE: CASE EVENT DATE: 20210419
